FAERS Safety Report 18364854 (Version 4)
Quarter: 2020Q4

REPORT INFORMATION
  Report Type: Spontaneous
  Country: US (occurrence: US)
  Receive Date: 20201009
  Receipt Date: 20201204
  Transmission Date: 20210114
  Serious: Yes (Hospitalization, Other)
  Sender: FDA-Public Use
  Company Number: US-ASTRAZENECA-2020SF25126

PATIENT
  Age: 30244 Day
  Sex: Female

DRUGS (1)
  1. SYMBICORT [Suspect]
     Active Substance: BUDESONIDE\FORMOTEROL FUMARATE DIHYDRATE
     Dosage: 80/4.5 UG, 2 PUFFS, TWO TIMES A DAY
     Route: 055

REACTIONS (10)
  - Pleural effusion [Recovering/Resolving]
  - Illness [Unknown]
  - Device failure [Unknown]
  - Wheezing [Not Recovered/Not Resolved]
  - Device use error [Unknown]
  - Drug delivery system issue [Unknown]
  - Incorrect dose administered by device [Unknown]
  - Pneumonia [Not Recovered/Not Resolved]
  - Drug ineffective [Unknown]
  - Urinary tract infection [Unknown]

NARRATIVE: CASE EVENT DATE: 20200913
